FAERS Safety Report 11104035 (Version 1)
Quarter: 2015Q2

REPORT INFORMATION
  Report Type: Spontaneous
  Country: US (occurrence: None)
  Receive Date: 20150508
  Receipt Date: 20150508
  Transmission Date: 20150821
  Serious: No
  Sender: FDA-Public Use
  Company Number: None

PATIENT
  Age: 25 Year
  Sex: Female
  Weight: 70.31 kg

DRUGS (5)
  1. WELLBUTRIN [Concomitant]
     Active Substance: BUPROPION HYDROCHLORIDE
  2. LAMICTAL [Suspect]
     Active Substance: LAMOTRIGINE
     Indication: BIPOLAR DISORDER
     Route: 048
     Dates: start: 20140418, end: 20150507
  3. PROTONIX [Concomitant]
     Active Substance: PANTOPRAZOLE SODIUM
  4. TOPAMAX [Concomitant]
     Active Substance: TOPIRAMATE
  5. CLARITIN [Concomitant]
     Active Substance: LORATADINE

REACTIONS (5)
  - Feeling of body temperature change [None]
  - Dizziness [None]
  - Nightmare [None]
  - Abdominal discomfort [None]
  - Vision blurred [None]

NARRATIVE: CASE EVENT DATE: 20150507
